FAERS Safety Report 6464419-X (Version None)
Quarter: 2009Q4

REPORT INFORMATION
  Report Type: 
  Country: None (occurrence: None)
  Receive Date: 20091201
  Receipt Date: 20091123
  Transmission Date: 20100525
  Serious: Yes (Hospitalization, Other)
  Sender: FDA-Public Use
  Company Number: US-AMGEN-QUU376209

PATIENT
  Sex: Female

DRUGS (1)
  1. ENBREL [Suspect]
     Indication: RHEUMATOID ARTHRITIS
     Route: 058

REACTIONS (6)
  - DIVERTICULITIS [None]
  - DIVERTICULUM [None]
  - INJECTION SITE PAIN [None]
  - NEEDLE ISSUE [None]
  - RHEUMATOID ARTHRITIS [None]
  - WEIGHT DECREASED [None]
